FAERS Safety Report 11080678 (Version 1)
Quarter: 2015Q2

REPORT INFORMATION
  Report Type: Spontaneous
  Country: US (occurrence: None)
  Receive Date: 20150430
  Receipt Date: 20150430
  Transmission Date: 20150821
  Serious: No
  Sender: FDA-Public Use
  Company Number: None

PATIENT
  Age: 38 Year
  Sex: Male
  Weight: 81.65 kg

DRUGS (3)
  1. ALIVE GUMMY VITAMINES [Concomitant]
  2. ANDROGEL [Suspect]
     Active Substance: TESTOSTERONE
     Indication: BLOOD TESTOSTERONE DECREASED
     Dosage: 1 PUMP TO EACH UPPER ARM DAILY, ONCE DAILY, APPLIED TO A SURFACE, USUALLY THE SKIN
     Dates: start: 20141224, end: 20150429
  3. RANIDITINE [Concomitant]

REACTIONS (2)
  - Pruritus [None]
  - Acne [None]

NARRATIVE: CASE EVENT DATE: 20150406
